FAERS Safety Report 18481305 (Version 5)
Quarter: 2021Q1

REPORT INFORMATION
  Report Type: Spontaneous
  Country: CZ (occurrence: CZ)
  Receive Date: 20201109
  Receipt Date: 20210331
  Transmission Date: 20210419
  Serious: Yes (Death, Hospitalization)
  Sender: FDA-Public Use
  Company Number: CZ-TEVA-2020-CZ-1845614

PATIENT
  Age: 75 Year
  Sex: Female

DRUGS (19)
  1. CEFOTAXIME [Suspect]
     Active Substance: CEFOTAXIME SODIUM
     Indication: PNEUMONIA
     Route: 065
  2. ARGIPRESSIN [Suspect]
     Active Substance: ARGIPRESSIN
     Indication: CARDIOVASCULAR DISORDER
     Route: 065
  3. DOBUTAMINE [Suspect]
     Active Substance: DOBUTAMINE HYDROCHLORIDE
     Indication: CARDIOVASCULAR DISORDER
     Route: 065
  4. GLICLAZIDE [Suspect]
     Active Substance: GLICLAZIDE
     Indication: TYPE 2 DIABETES MELLITUS
     Dosage: 90 MILLIGRAM DAILY; 90 MG DAILY
     Route: 065
  5. PANTOPRAZOLE [Concomitant]
     Active Substance: PANTOPRAZOLE
  6. FUROSEMIDE. [Concomitant]
     Active Substance: FUROSEMIDE
  7. ACETYLSALICYLIC ACID [Concomitant]
     Active Substance: ASPIRIN
  8. LOPERAMIDE [Concomitant]
     Active Substance: LOPERAMIDE
     Indication: DIARRHOEA
  9. NORADRENALINE [Suspect]
     Active Substance: NOREPINEPHRINE
     Indication: CARDIOVASCULAR DISORDER
     Route: 065
  10. ATORVASTATIN [Concomitant]
     Active Substance: ATORVASTATIN
  11. METFORMIN [Suspect]
     Active Substance: METFORMIN HYDROCHLORIDE
     Indication: TYPE 2 DIABETES MELLITUS
     Dosage: 3 GRAM DAILY; 3 G DAILY
     Route: 065
  12. CLARITHROMYCIN. [Suspect]
     Active Substance: CLARITHROMYCIN
     Indication: PNEUMONIA
     Route: 065
  13. MEROPENEM. [Suspect]
     Active Substance: MEROPENEM
     Indication: PNEUMONIA
     Route: 065
  14. TRANDOLAPRIL. [Concomitant]
     Active Substance: TRANDOLAPRIL
  15. HYDROCHLOROTHIAZIDE. [Concomitant]
     Active Substance: HYDROCHLOROTHIAZIDE
  16. BISOPROLOL [Concomitant]
     Active Substance: BISOPROLOL
  17. AMIODARONE [Concomitant]
     Active Substance: AMIODARONE
     Indication: TACHYCARDIA
  18. LEVOTHYROXINE. [Concomitant]
     Active Substance: LEVOTHYROXINE
  19. BETAHISTINE [Concomitant]
     Active Substance: BETAHISTINE

REACTIONS (12)
  - Lactic acidosis [Fatal]
  - Acute coronary syndrome [Fatal]
  - Septic shock [Fatal]
  - Liver disorder [Fatal]
  - Toxicity to various agents [Fatal]
  - Hypoglycaemia [Unknown]
  - Respiratory failure [Fatal]
  - Coagulopathy [Fatal]
  - Cardiogenic shock [Fatal]
  - Drug ineffective [Fatal]
  - Cardiovascular disorder [Fatal]
  - Liver injury [Fatal]
